FAERS Safety Report 14900033 (Version 1)
Quarter: 2018Q2

REPORT INFORMATION
  Report Type: Spontaneous
  Country: GR (occurrence: GR)
  Receive Date: 20180516
  Receipt Date: 20180516
  Transmission Date: 20180711
  Serious: Yes (Death, Hospitalization, Other)
  Sender: FDA-Public Use
  Company Number: GR-BION-007176

PATIENT
  Age: 76 Year
  Sex: Female

DRUGS (1)
  1. DICLOFENAC UNKNOWN PRODUCT [Suspect]
     Active Substance: DICLOFENAC
     Indication: MUSCULOSKELETAL PAIN
     Dosage: 50 MG PO TWICE PER DAY

REACTIONS (4)
  - Hepatic encephalopathy [Unknown]
  - Autoimmune hepatitis [Unknown]
  - Acute hepatic failure [Fatal]
  - Upper gastrointestinal haemorrhage [Unknown]
